FAERS Safety Report 9521017 (Version 1)
Quarter: 2013Q3

REPORT INFORMATION
  Report Type: Spontaneous
  Country: US (occurrence: US)
  Receive Date: 20130913
  Receipt Date: 20130913
  Transmission Date: 20140515
  Serious: No
  Sender: FDA-Public Use
  Company Number: US-009507513-1309USA004277

PATIENT
  Sex: Female

DRUGS (8)
  1. TIMOPTIC IN OCUDOSE [Suspect]
     Indication: GLAUCOMA
     Dosage: 2 GTT, QD
     Route: 047
     Dates: start: 2003
  2. TIMOPTIC [Suspect]
     Indication: GLAUCOMA
  3. LUMIGAN [Concomitant]
  4. METFORMIN [Concomitant]
  5. SIMVASTATIN TABLETS, USP [Concomitant]
  6. VITAMINS (UNSPECIFIED) [Concomitant]
  7. OMEGA-3 MARINE TRIGLYCERIDES [Concomitant]
  8. VITAMIN A [Concomitant]

REACTIONS (2)
  - Pain [Unknown]
  - Erythema [Unknown]
